FAERS Safety Report 18495667 (Version 2)
Quarter: 2021Q1

REPORT INFORMATION
  Report Type: Spontaneous
  Country: US (occurrence: US)
  Receive Date: 20201112
  Receipt Date: 20210111
  Transmission Date: 20210419
  Serious: Yes (Hospitalization)
  Sender: FDA-Public Use
  Company Number: US-ROCHE-2528131

PATIENT
  Sex: Female

DRUGS (27)
  1. XOLAIR [Suspect]
     Active Substance: OMALIZUMAB
  2. XOLAIR [Suspect]
     Active Substance: OMALIZUMAB
  3. AMIODARONE [Concomitant]
     Active Substance: AMIODARONE
  4. FUROSEMIDE. [Concomitant]
     Active Substance: FUROSEMIDE
  5. GLIPIZIDE. [Concomitant]
     Active Substance: GLIPIZIDE
  6. XOLAIR [Suspect]
     Active Substance: OMALIZUMAB
     Indication: MACULAR DEGENERATION
  7. ALBUTEROL SULFATE. [Concomitant]
     Active Substance: ALBUTEROL SULFATE
     Dosage: 2.5 MG/3 ML
  8. EPIPEN [Concomitant]
     Active Substance: EPINEPHRINE
     Route: 030
  9. PAKISONAL [Concomitant]
  10. METOPROLOL. [Concomitant]
     Active Substance: METOPROLOL
  11. NOVOLOG [Concomitant]
     Active Substance: INSULIN ASPART
  12. LOSARTAN/HCT [Concomitant]
     Active Substance: HYDROCHLOROTHIAZIDE\LOSARTAN POTASSIUM
     Dosage: TAB 100?12.5
  13. OXYBUTYNIN. [Concomitant]
     Active Substance: OXYBUTYNIN CHLORIDE
  14. VERAPAMIL [Concomitant]
     Active Substance: VERAPAMIL HYDROCHLORIDE
     Route: 048
  15. MAGNESIUM [Concomitant]
     Active Substance: MAGNESIUM
  16. XOLAIR [Suspect]
     Active Substance: OMALIZUMAB
  17. VENTOLIN [Concomitant]
     Active Substance: ALBUTEROL SULFATE
  18. LOSARTAN. [Concomitant]
     Active Substance: LOSARTAN
  19. PREDNISONE. [Concomitant]
     Active Substance: PREDNISONE
     Route: 048
  20. ADVAIR DISKUS [Concomitant]
     Active Substance: FLUTICASONE PROPIONATE\SALMETEROL XINAFOATE
  21. THEOPHYLLINE [Concomitant]
     Active Substance: THEOPHYLLINE ANHYDROUS
  22. ZOFRAN [Concomitant]
     Active Substance: ONDANSETRON HYDROCHLORIDE
  23. XOLAIR [Suspect]
     Active Substance: OMALIZUMAB
  24. MONTELUKAST [Concomitant]
     Active Substance: MONTELUKAST SODIUM
  25. KLOR?CON [Concomitant]
     Active Substance: POTASSIUM CHLORIDE
  26. XOLAIR [Suspect]
     Active Substance: OMALIZUMAB
     Indication: ASTHMA
     Dosage: FORM : 150 MG/ML
     Route: 058
     Dates: start: 20160818
  27. GLIPIZIDE ER [Concomitant]
     Active Substance: GLIPIZIDE

REACTIONS (4)
  - Intentional product use issue [Unknown]
  - Off label use [Unknown]
  - Atrial fibrillation [Not Recovered/Not Resolved]
  - Cardiac failure congestive [Recovered/Resolved]
